FAERS Safety Report 8997850 (Version 2)
Quarter: 2013Q1

REPORT INFORMATION
  Report Type: Spontaneous
  Country: IT (occurrence: IT)
  Receive Date: 20130104
  Receipt Date: 20130118
  Transmission Date: 20140127
  Serious: Yes (Hospitalization)
  Sender: FDA-Public Use
  Company Number: IT-TEVA-378943USA

PATIENT
  Age: 77 Year
  Sex: Male

DRUGS (9)
  1. TREANDA [Suspect]
     Indication: FOLLICLE CENTRE LYMPHOMA, FOLLICULAR GRADE I, II, III REFRACTORY
     Route: 042
     Dates: start: 20120910, end: 20121009
  2. ALPRAZOLAM [Concomitant]
  3. HUMALOG [Concomitant]
     Dosage: 100 IU/ML
  4. OMNIC [Concomitant]
  5. CATAPRES-TTS [Concomitant]
  6. CYMBALTA [Concomitant]
  7. CARDIOASPIRIN [Concomitant]
  8. LORTAAN [Concomitant]
  9. LEVEMIR [Concomitant]
     Dosage: 100 IU/ML

REACTIONS (1)
  - Myocardial infarction [Recovered/Resolved with Sequelae]
